FAERS Safety Report 7403694-1 (Version None)
Quarter: 2011Q2

REPORT INFORMATION
  Report Type: 
  Country: None (occurrence: None)
  Receive Date: 20110408
  Receipt Date: 20110405
  Transmission Date: 20111010
  Serious: Yes (Hospitalization)
  Sender: FDA-Public Use
  Company Number: PHHO2009JP15975

PATIENT
  Sex: Male
  Weight: 48 kg

DRUGS (14)
  1. NEORAL [Suspect]
     Indication: RENAL TRANSPLANT
     Dosage: 100 MG DAILY
     Route: 048
     Dates: start: 20080518
  2. ALOSENN [Concomitant]
     Indication: CONSTIPATION
  3. PARIET [Concomitant]
     Indication: GASTRITIS PROPHYLAXIS
  4. ADALAT [Concomitant]
     Indication: HYPERTENSION
  5. TAMSULOSIN HYDROCHLORIDE [Concomitant]
     Indication: BENIGN PROSTATIC HYPERPLASIA
  6. SANDIMMUNE [Concomitant]
     Route: 042
  7. AMLODIN [Concomitant]
     Indication: HYPERTENSION
  8. ALLOID [Concomitant]
     Indication: GASTRITIS PROPHYLAXIS
  9. SIMULECT [Concomitant]
     Dosage: 20 MG, ONCE/SINGLE
     Route: 042
  10. PREDONINE [Concomitant]
     Indication: RENAL TRANSPLANT
  11. EVEROLIMUS [Suspect]
     Indication: RENAL TRANSPLANT
     Dosage: UNK
     Route: 048
     Dates: start: 20080522
  12. BAKTAR [Concomitant]
     Indication: INFECTION PROPHYLAXIS
  13. LOCHOL [Concomitant]
     Indication: HYPERCHOLESTEROLAEMIA
  14. ASPIRIN [Concomitant]

REACTIONS (3)
  - MALAISE [None]
  - OEDEMA PERIPHERAL [None]
  - PROTEINURIA [None]
